FAERS Safety Report 12287061 (Version 2)
Quarter: 2016Q2

REPORT INFORMATION
  Report Type: Spontaneous
  Country: FR (occurrence: FR)
  Receive Date: 20160420
  Receipt Date: 20160425
  Transmission Date: 20160815
  Serious: Yes (Other)
  Sender: FDA-Public Use
  Company Number: PHHY2016FR051288

PATIENT
  Age: 80 Year
  Sex: Female

DRUGS (5)
  1. AZARGA [Interacting]
     Active Substance: BRINZOLAMIDE\TIMOLOL MALEATE
     Indication: GLAUCOMA
     Dosage: 2 INSTILLATIONS, QD IN THE RIGHT EYE
     Route: 047
     Dates: start: 201602
  2. GANFORT [Interacting]
     Active Substance: BIMATOPROST\TIMOLOL
     Indication: INTRAOCULAR PRESSURE INCREASED
  3. LEVOFLOXACIN SANDOZ [Suspect]
     Active Substance: LEVOFLOXACIN
     Indication: ANTIBIOTIC PROPHYLAXIS
     Dosage: 1 DF, ONCE/SINGLE
     Route: 048
     Dates: start: 20160407, end: 20160407
  4. AZARGA [Interacting]
     Active Substance: BRINZOLAMIDE\TIMOLOL MALEATE
     Indication: INTRAOCULAR PRESSURE INCREASED
  5. GANFORT [Interacting]
     Active Substance: BIMATOPROST\TIMOLOL
     Indication: GLAUCOMA
     Dosage: 2 INSTILLATIONS, QD IN THE LEFT EYE
     Route: 047
     Dates: start: 201602

REACTIONS (3)
  - Hallucination [Recovered/Resolved]
  - Off label use [Unknown]
  - Drug interaction [Recovered/Resolved]

NARRATIVE: CASE EVENT DATE: 20160407
